FAERS Safety Report 5093973-8 (Version None)
Quarter: 2006Q3

REPORT INFORMATION
  Report Type: 
  Country: None (occurrence: None)
  Receive Date: 20060831
  Receipt Date: 20060829
  Transmission Date: 20061208
  Serious: Yes (Life-Threatening, Hospitalization)
  Sender: FDA-Public Use
  Company Number: 2006SE04652

PATIENT
  Age: 23865 Day
  Sex: Male

DRUGS (3)
  1. ATACAND [Suspect]
     Indication: HYPERTENSION
     Route: 048
     Dates: start: 20020101, end: 20060822
  2. HJERTEMAGNYL [Concomitant]
  3. CENTYL WITH POTASSIUM [Concomitant]

REACTIONS (3)
  - ANAPHYLACTIC REACTION [None]
  - ANGIONEUROTIC OEDEMA [None]
  - GENERAL PHYSICAL HEALTH DETERIORATION [None]
